FAERS Safety Report 8302154-3 (Version None)
Quarter: 2012Q2

REPORT INFORMATION
  Report Type: 
  Country: None (occurrence: None)
  Receive Date: 20120404
  Receipt Date: 20120329
  Transmission Date: 20120825
  Serious: Yes (Other)
  Sender: FDA-Public Use
  Company Number: 2012031803

PATIENT
  Sex: Male

DRUGS (3)
  1. HIZENTRA [Suspect]
     Indication: BRUTON'S AGAMMAGLOBULINAEMIA
     Dosage: 12 G 1X/WEEK, OVER 1.5 HOURS, SUBCUTANEOUS
     Route: 058
  2. INVEGA ER (ANTIPSYCHOTICS) [Concomitant]
  3. DEPAKOTE ER (VALPROATE SEMISOIDUM) [Concomitant]

REACTIONS (12)
  - GENERAL PHYSICAL HEALTH DETERIORATION [None]
  - FATIGUE [None]
  - SOMNOLENCE [None]
  - ACCIDENT [None]
  - ANAEMIA [None]
  - SYNCOPE [None]
  - HYPERHIDROSIS [None]
  - LIP DISCOLOURATION [None]
  - WHITE BLOOD CELL COUNT INCREASED [None]
  - FEMUR FRACTURE [None]
  - BLOOD IMMUNOGLOBULIN G INCREASED [None]
  - ASTHENIA [None]
